FAERS Safety Report 7439350-3 (Version None)
Quarter: 2011Q2

REPORT INFORMATION
  Report Type: 
  Country: None (occurrence: None)
  Receive Date: 20110427
  Receipt Date: 20110420
  Transmission Date: 20111010
  Serious: Yes (Other)
  Sender: FDA-Public Use
  Company Number: US-BAYER-2011-034705

PATIENT
  Age: 28 Year
  Sex: Female

DRUGS (2)
  1. YAZ [Suspect]
  2. YASMIN [Suspect]

REACTIONS (5)
  - METAMORPHOPSIA [None]
  - VISUAL IMPAIRMENT [None]
  - INJURY [None]
  - AMAUROSIS FUGAX [None]
  - BLINDNESS [None]
